FAERS Safety Report 19719110 (Version 1)
Quarter: 2021Q3

REPORT INFORMATION
  Report Type: Spontaneous
  Country: DE (occurrence: DE)
  Receive Date: 20210819
  Receipt Date: 20210819
  Transmission Date: 20211014
  Serious: Yes (Other)
  Sender: FDA-Public Use
  Company Number: DE-MYLANLABS-2021M1052101

PATIENT
  Age: 67 Year
  Sex: Male
  Weight: 80 kg

DRUGS (5)
  1. SIMVASTATIN. [Interacting]
     Active Substance: SIMVASTATIN
     Indication: CORONARY ARTERY DISEASE
  2. SIMVASTATIN. [Suspect]
     Active Substance: SIMVASTATIN
     Indication: HYPERLIPIDAEMIA
     Dosage: UNK
     Dates: start: 2017
  3. EZETIMIBA [Interacting]
     Active Substance: EZETIMIBE
     Indication: CORONARY ARTERY DISEASE
  4. EZETIMIBA [Interacting]
     Active Substance: EZETIMIBE
     Indication: HYPERLIPIDAEMIA
     Dosage: UNK
     Route: 048
     Dates: start: 20210210, end: 20210217
  5. EZETIMIBA [Interacting]
     Active Substance: EZETIMIBE
     Indication: LOW DENSITY LIPOPROTEIN ABNORMAL

REACTIONS (6)
  - Muscle spasms [Not Recovered/Not Resolved]
  - Adverse reaction [Unknown]
  - Muscle rupture [Not Recovered/Not Resolved]
  - Drug interaction [Unknown]
  - Myalgia [Unknown]
  - Haematoma [Not Recovered/Not Resolved]

NARRATIVE: CASE EVENT DATE: 202102
